FAERS Safety Report 21996426 (Version 1)
Quarter: 2023Q1

REPORT INFORMATION
  Report Type: Report from Study
  Country: US (occurrence: US)
  Receive Date: 20230215
  Receipt Date: 20230215
  Transmission Date: 20230417
  Serious: Yes (Hospitalization)
  Sender: FDA-Public Use
  Company Number: US-MYLANLABS-2022M1097679

PATIENT
  Sex: Male

DRUGS (1)
  1. TOBI [Suspect]
     Active Substance: TOBRAMYCIN
     Indication: Prophylaxis against bronchospasm
     Dosage: 300 MILLIGRAM, BID(300 MG EVERY 12 HOURS,14 DAY ON/OFF CYCLE)

REACTIONS (2)
  - Tracheobronchitis [Unknown]
  - Off label use [Unknown]
